FAERS Safety Report 9795862 (Version 2)
Quarter: 2014Q1

REPORT INFORMATION
  Report Type: Spontaneous
  Country: FR (occurrence: FR)
  Receive Date: 20140103
  Receipt Date: 20140117
  Transmission Date: 20141002
  Serious: Yes (Death)
  Sender: FDA-Public Use
  Company Number: FR-NOVOPROD-396750

PATIENT
  Age: 1 Year
  Sex: Male
  Weight: 11 kg

DRUGS (6)
  1. NOVOSEVEN [Suspect]
     Indication: HAEMORRHAGE
     Dosage: 60 ?G/KG, QD
     Route: 065
  2. NOVOSEVEN [Suspect]
     Indication: CARDIOGENIC SHOCK
  3. NOVOSEVEN [Suspect]
     Indication: MYOCARDITIS
  4. RED BLOOD CELLS [Concomitant]
  5. PLATELET CONCENTRATE [Concomitant]
  6. FRESH FROZEN PLASMA [Concomitant]

REACTIONS (1)
  - Respiratory failure [Fatal]
